FAERS Safety Report 5837942-6 (Version None)
Quarter: 2008Q3

REPORT INFORMATION
  Report Type: 
  Country: None (occurrence: None)
  Receive Date: 20080808
  Receipt Date: 20080728
  Transmission Date: 20090109
  Serious: Yes (Other)
  Sender: FDA-Public Use
  Company Number: US-ROCHE-568830

PATIENT
  Sex: Female
  Weight: 64.4 kg

DRUGS (9)
  1. PEGASYS [Suspect]
     Indication: HEPATITIS C
     Dosage: FORMULATION: INJECTION
     Route: 065
     Dates: start: 20071221, end: 20080606
  2. RIBAVIRIN [Suspect]
     Indication: HEPATITIS C
     Route: 065
     Dates: start: 20071221, end: 20080606
  3. ZOLOFT [Concomitant]
     Indication: DEPRESSION
     Dosage: REPORTED AS 100 MG PM.
  4. NORVASC [Concomitant]
  5. METOPROLOL SUCCINATE [Concomitant]
  6. PRILOSEC [Concomitant]
  7. ZETIA [Concomitant]
     Dosage: REPORTED AS 10 PM.
  8. DIOVAN [Concomitant]
  9. BENADRYL [Concomitant]
     Dosage: AS NEEDED FOR HIVES.

REACTIONS (13)
  - BLOOD GLUCOSE INCREASED [None]
  - BLOOD PRESSURE INCREASED [None]
  - BLOOD SODIUM DECREASED [None]
  - BLOOD THYROID STIMULATING HORMONE INCREASED [None]
  - CANDIDIASIS [None]
  - COAGULOPATHY [None]
  - COUGH [None]
  - FATIGUE [None]
  - FULL BLOOD COUNT DECREASED [None]
  - PAIN [None]
  - SKIN ULCER [None]
  - VISION BLURRED [None]
  - WHITE BLOOD CELL COUNT DECREASED [None]
